FAERS Safety Report 7075092-4 (Version None)
Quarter: 2010Q4

REPORT INFORMATION
  Report Type: 
  Country: None (occurrence: None)
  Receive Date: 20101029
  Receipt Date: 20100910
  Transmission Date: 20110411
  Serious: No
  Sender: FDA-Public Use
  Company Number: US-WYE-H14590010

PATIENT
  Age: 42 Year
  Sex: Female
  Weight: 54.48 kg

DRUGS (1)
  1. ADVIL PM [Suspect]
     Indication: INSOMNIA
     Dosage: 2 CAPLETS AT BEDTIME AS NEEDED
     Route: 048
     Dates: start: 20091001, end: 20100406

REACTIONS (4)
  - HALLUCINATION [None]
  - PRODUCT QUALITY ISSUE [None]
  - SLEEP TALKING [None]
  - SOMNAMBULISM [None]
